FAERS Safety Report 7693604-4 (Version None)
Quarter: 2011Q3

REPORT INFORMATION
  Report Type: 
  Country: None (occurrence: None)
  Receive Date: 20110819
  Receipt Date: 20110810
  Transmission Date: 20111222
  Serious: Yes (Other)
  Sender: FDA-Public Use
  Company Number: PHFR2011GB02500

PATIENT
  Sex: Male
  Weight: 113 kg

DRUGS (4)
  1. BEZAFIBRATE [Concomitant]
     Dosage: 400 MG/DAY
     Route: 048
  2. CLOZAPINE [Suspect]
     Indication: SCHIZOPHRENIA
     Dosage: UNK
     Route: 048
     Dates: start: 20061204
  3. CLOZAPINE [Suspect]
     Dosage: 150 MG MANE + 175 MG NOCTE
     Route: 048
     Dates: start: 20110630, end: 20110707
  4. TRIHEXYPHENIDYL [Concomitant]
     Indication: EXTRAPYRAMIDAL DISORDER
     Dosage: 5 MG/DAY
     Route: 048

REACTIONS (3)
  - URINARY TRACT INFECTION [None]
  - NEUTROPHIL COUNT DECREASED [None]
  - BLOOD TEST ABNORMAL [None]
